FAERS Safety Report 7044086-7 (Version None)
Quarter: 2010Q4

REPORT INFORMATION
  Report Type: 
  Country: None (occurrence: None)
  Receive Date: 20101013
  Receipt Date: 20101005
  Transmission Date: 20110411
  Serious: Yes (Other)
  Sender: FDA-Public Use
  Company Number: JP-PFIZER INC-2010126371

PATIENT
  Age: 64 Year
  Sex: Male

DRUGS (7)
  1. SUNITINIB MALATE [Suspect]
     Indication: RENAL CELL CARCINOMA
     Dosage: 50 MG, 1X/DAY
     Route: 048
     Dates: start: 20090205
  2. TAMSULOSIN HCL [Concomitant]
     Dosage: UNK
     Route: 048
  3. SOLANAX [Concomitant]
     Dosage: UNK
     Route: 048
  4. SILECE [Concomitant]
     Dosage: UNK
     Route: 048
  5. SEROQUEL [Concomitant]
     Dosage: UNK
     Route: 048
  6. PHENOBARBITAL TAB [Concomitant]
     Dosage: UNK
     Route: 048
  7. URSO 250 [Concomitant]
     Dosage: UNK
     Route: 048

REACTIONS (1)
  - PYODERMA GANGRENOSUM [None]
